FAERS Safety Report 7329753-X (Version None)
Quarter: 2011Q1

REPORT INFORMATION
  Report Type: 
  Country: None (occurrence: None)
  Receive Date: 20110223
  Receipt Date: 20110204
  Transmission Date: 20110831
  Serious: Yes (Life-Threatening, Hospitalization, Other)
  Sender: FDA-Public Use
  Company Number: AUR-APL-2010-01444

PATIENT
  Age: 52 Year
  Sex: Male

DRUGS (5)
  1. AMLODIPINE [Concomitant]
  2. FUSIDIC ACID [Concomitant]
     Indication: LOCALISED INFECTION
     Dosage: 500MG, TID
  3. FLUCLOXACILLN 500MG [Concomitant]
  4. HUMALOG [Concomitant]
  5. SIMVASTATIN [Suspect]
     Dosage: 40MG, DAILY, ORAL
     Route: 048

REACTIONS (6)
  - RHABDOMYOLYSIS [None]
  - QUADRIPARESIS [None]
  - TOXICITY TO VARIOUS AGENTS [None]
  - RENAL FAILURE ACUTE [None]
  - AREFLEXIA [None]
  - HAEMODIALYSIS [None]
